FAERS Safety Report 4280748-2 (Version None)
Quarter: 2004Q1

REPORT INFORMATION
  Report Type: 
  Country: None (occurrence: None)
  Receive Date: 20040129
  Receipt Date: 20040123
  Transmission Date: 20041129
  Serious: Yes (Other)
  Sender: FDA-Public Use
  Company Number: US-BRISTOL-MYERS SQUIBB COMPANY-12485892

PATIENT
  Age: 17 Year
  Sex: Female
  Weight: 100 kg

DRUGS (1)
  1. GLUCOPHAGE [Suspect]
     Indication: MENSTRUATION IRREGULAR
     Route: 048
     Dates: start: 20031103

REACTIONS (3)
  - CONVULSION [None]
  - HEADACHE [None]
  - NAUSEA [None]
